FAERS Safety Report 20458321 (Version 3)
Quarter: 2022Q2

REPORT INFORMATION
  Report Type: Spontaneous
  Country: US (occurrence: US)
  Receive Date: 20220211
  Receipt Date: 20220414
  Transmission Date: 20220721
  Serious: Yes (Other)
  Sender: FDA-Public Use
  Company Number: US-CHIESI-2022CHF00572

PATIENT
  Age: 80 Year
  Sex: Male
  Weight: 96 kg

DRUGS (6)
  1. FERRIPROX [Suspect]
     Active Substance: DEFERIPRONE
     Indication: Haemochromatosis
     Dosage: 2000 MILLIGRAM, BID
     Route: 048
     Dates: start: 20211216, end: 20220407
  2. FERRIPROX [Suspect]
     Active Substance: DEFERIPRONE
     Indication: Transfusion
  3. FERRIPROX [Suspect]
     Active Substance: DEFERIPRONE
     Indication: Myelodysplastic syndrome
  4. FERRIPROX [Suspect]
     Active Substance: DEFERIPRONE
     Indication: Off label use
  5. XANAX [Concomitant]
     Active Substance: ALPRAZOLAM
     Indication: Product used for unknown indication
     Dosage: UNK
  6. IBUPROFEN [Concomitant]
     Active Substance: IBUPROFEN
     Indication: Product used for unknown indication
     Dosage: UNK

REACTIONS (5)
  - Accidental device ingestion [Recovering/Resolving]
  - Dental restoration failure [Recovering/Resolving]
  - Nausea [Recovering/Resolving]
  - White blood cell count decreased [Recovering/Resolving]
  - Off label use [Recovered/Resolved]

NARRATIVE: CASE EVENT DATE: 20211216
